FAERS Safety Report 9266232 (Version 1)
Quarter: 2013Q2

REPORT INFORMATION
  Report Type: Report from Study
  Country: US (occurrence: US)
  Receive Date: 20130502
  Receipt Date: 20130502
  Transmission Date: 20140414
  Serious: Yes (Death, Other)
  Sender: FDA-Public Use
  Company Number: US-ROCHE-1195558

PATIENT
  Sex: 0

DRUGS (2)
  1. BEVACIZUMAB [Suspect]
     Indication: COLORECTAL CANCER METASTATIC
     Route: 065
  2. BEVACIZUMAB [Suspect]
     Indication: NON-SMALL CELL LUNG CANCER

REACTIONS (13)
  - Gastrointestinal perforation [Fatal]
  - Hypertension [Unknown]
  - Neutropenia [Unknown]
  - Anaemia [Unknown]
  - White blood cell count decreased [Unknown]
  - Haemoglobin decreased [Unknown]
  - Neutropenic infection [Unknown]
  - Aspiration [Unknown]
  - Enteritis [Unknown]
  - Fatigue [Unknown]
  - Haemorrhage [Unknown]
  - Dehydration [Unknown]
  - Diarrhoea [Unknown]
